FAERS Safety Report 23939762 (Version 1)
Quarter: 2024Q2

REPORT INFORMATION
  Report Type: Spontaneous
  Country: US (occurrence: US)
  Receive Date: 20240605
  Receipt Date: 20240605
  Transmission Date: 20240715
  Serious: No
  Sender: FDA-Public Use
  Company Number: US-CELLTRION INC.-2024US010916

PATIENT

DRUGS (1)
  1. YUFLYMA [Suspect]
     Active Substance: ADALIMUMAB-AATY
     Indication: Arthritis
     Dosage: 40 MG EVERY OTHER WEEK; THERAPY DATES: AROUND 10 WEEKS AGO - (ONGOING)/THERAPY START DATE: UNKNOWN:
     Route: 058

REACTIONS (6)
  - Device malfunction [Recovered/Resolved]
  - Needle issue [Recovered/Resolved]
  - Product label confusion [Recovered/Resolved]
  - Exposure via skin contact [Recovered/Resolved]
  - Accidental exposure to product [Recovered/Resolved]
  - Drug dose omission by device [Recovered/Resolved]

NARRATIVE: CASE EVENT DATE: 20240424
